FAERS Safety Report 9921880 (Version 1)
Quarter: 2014Q1

REPORT INFORMATION
  Report Type: Spontaneous
  Country: US (occurrence: None)
  Receive Date: 20140221
  Receipt Date: 20140221
  Transmission Date: 20141002
  Serious: Yes (Disabling)
  Sender: FDA-Public Use
  Company Number: None

PATIENT
  Age: 63 Year
  Sex: Male
  Weight: 86.18 kg

DRUGS (2)
  1. FINASTERIDE [Suspect]
     Indication: PROSTATIC SPECIFIC ANTIGEN INCREASED
     Route: 048
     Dates: start: 20070915, end: 20080715
  2. FINASTERIDE [Suspect]
     Indication: PROSTATOMEGALY
     Route: 048
     Dates: start: 20070915, end: 20080715

REACTIONS (4)
  - Loss of libido [None]
  - Erectile dysfunction [None]
  - Libido decreased [None]
  - Male sexual dysfunction [None]
